FAERS Safety Report 19694815 (Version 1)
Quarter: 2021Q3

REPORT INFORMATION
  Report Type: Spontaneous
  Country: DE (occurrence: DE)
  Receive Date: 20210813
  Receipt Date: 20210813
  Transmission Date: 20211014
  Serious: Yes (Hospitalization)
  Sender: FDA-Public Use
  Company Number: DE-TEVA-2021-DE-1940770

PATIENT
  Age: 21 Year
  Sex: Female

DRUGS (4)
  1. MORPHIN [Suspect]
     Active Substance: MORPHINE
     Dosage: 5 MG, FROM EMERGENCY DOCTOR
     Route: 042
  2. METAMIZOL [Concomitant]
     Active Substance: METAMIZOLE SODIUM
     Dosage: 40 GTT, TAKEN IN THE NIGHT FROM THE ELEVENTH TO THE TWELFTH OF MAY, DROPS
     Route: 048
  3. TILIDINE [Suspect]
     Active Substance: TILIDINE
     Dosage: 200 MG, TAKEN IN TOTAL ON THE NIGHT OF THE ELEVENTH TO THE TWELFTH OF MAY
     Route: 048
  4. METAMIZOL [Concomitant]
     Active Substance: METAMIZOLE SODIUM
     Dosage: 2.5 G, FROM AN EMERGENCY DOCTOR
     Route: 042

REACTIONS (6)
  - Pain [Recovered/Resolved]
  - Abdominal pain upper [Recovered/Resolved]
  - Nausea [Recovered/Resolved]
  - Vomiting [Recovered/Resolved]
  - Product administration error [Recovered/Resolved]
  - Back pain [Recovered/Resolved]

NARRATIVE: CASE EVENT DATE: 20210511
